FAERS Safety Report 7319069-X (Version None)
Quarter: 2011Q1

REPORT INFORMATION
  Report Type: 
  Country: None (occurrence: None)
  Receive Date: 20110228
  Receipt Date: 20110216
  Transmission Date: 20110831
  Serious: Yes (Other)
  Sender: FDA-Public Use
  Company Number: DO-SANOFI-AVENTIS-2011SA010430

PATIENT

DRUGS (1)
  1. ARALEN [Suspect]
     Route: 065

REACTIONS (2)
  - ARRHYTHMIA [None]
  - ATRIOVENTRICULAR BLOCK [None]
